FAERS Safety Report 19673747 (Version 2)
Quarter: 2024Q3

REPORT INFORMATION
  Report Type: Spontaneous
  Country: US (occurrence: US)
  Receive Date: 20210809
  Receipt Date: 20240802
  Transmission Date: 20241017
  Serious: Yes (Other)
  Sender: ACCORD
  Company Number: US-ACCORD-169867

PATIENT
  Age: 61 Year
  Sex: Female
  Weight: 90.72 kg

DRUGS (6)
  1. DOCETAXEL [Suspect]
     Active Substance: DOCETAXEL\DOCETAXEL ANHYDROUS
     Indication: Invasive ductal breast carcinoma
     Dosage: NUMBER OF CYCLES:  04; 75 MG/M2 ON DL
     Route: 065
     Dates: start: 20140317, end: 20140428
  2. CYTOXAN [Suspect]
     Active Substance: CYCLOPHOSPHAMIDE
     Indication: Invasive ductal breast carcinoma
     Dosage: NUMBER OF CYCLES:  04
     Dates: start: 20140317, end: 20140428
  3. APOMORPHINE [Concomitant]
     Active Substance: APOMORPHINE
  4. CISAPRIDE [Concomitant]
     Active Substance: CISAPRIDE
  5. THIORIDAZINE [Concomitant]
     Active Substance: THIORIDAZINE
     Dates: start: 2009
  6. FLONASE [Concomitant]
     Active Substance: FLUTICASONE PROPIONATE
     Dates: start: 2009

REACTIONS (1)
  - Alopecia [Not Recovered/Not Resolved]

NARRATIVE: CASE EVENT DATE: 20140301
